FAERS Safety Report 13375460 (Version 1)
Quarter: 2017Q1

REPORT INFORMATION
  Report Type: Spontaneous
  Country: PT (occurrence: DK)
  Receive Date: 20170327
  Receipt Date: 20170327
  Transmission Date: 20170429
  Serious: Yes (Hospitalization)
  Sender: FDA-Public Use
  Company Number: PT-SUNOVION-2017SUN001263

PATIENT

DRUGS (2)
  1. PANODIL [Concomitant]
     Active Substance: ACETAMINOPHEN
     Indication: PAIN
  2. ZEBINIX [Suspect]
     Active Substance: ESLICARBAZEPINE ACETATE
     Indication: GENERALISED TONIC-CLONIC SEIZURE
     Dosage: 800 MG, 1X / DAY
     Route: 048
     Dates: start: 20101001, end: 20161212

REACTIONS (6)
  - Product use issue [Unknown]
  - Dyspnoea [Unknown]
  - Drug dose titration not performed [Unknown]
  - Weight increased [Unknown]
  - Generalised tonic-clonic seizure [Recovered/Resolved]
  - Oedema [Unknown]

NARRATIVE: CASE EVENT DATE: 20101001
